FAERS Safety Report 16042590 (Version 1)
Quarter: 2019Q1

REPORT INFORMATION
  Report Type: Spontaneous
  Country: US (occurrence: US)
  Receive Date: 20190306
  Receipt Date: 20190306
  Transmission Date: 20190418
  Serious: Yes (Other)
  Sender: FDA-Public Use
  Company Number: US-AKORN PHARMACEUTICALS-2019AKN00371

PATIENT
  Age: 32 Year
  Sex: Male
  Weight: 112.47 kg

DRUGS (5)
  1. ISOTRETINOIN (AMNEAL) [Suspect]
     Active Substance: ISOTRETINOIN
     Indication: ACNE
     Dosage: 40 MG, 2X/DAY
     Route: 048
     Dates: start: 20181220, end: 2019
  2. CREATINE INTRAWORKOUT [Suspect]
     Active Substance: CREATINE
     Dosage: UNK
  3. MYORISAN [Suspect]
     Active Substance: ISOTRETINOIN
     Indication: ACNE
     Dosage: 40 MG, 2X/DAY
     Route: 048
     Dates: start: 20181026, end: 2019
  4. CREATINE PREWORKOUT [Suspect]
     Active Substance: CREATINE
     Dosage: UNK
  5. CREATINE POSTWORKOUT [Suspect]
     Active Substance: CREATINE
     Dosage: UNK

REACTIONS (3)
  - Glomerular filtration rate decreased [Not Recovered/Not Resolved]
  - Blood creatinine increased [Not Recovered/Not Resolved]
  - Aspartate aminotransferase increased [Not Recovered/Not Resolved]

NARRATIVE: CASE EVENT DATE: 20190121
